FAERS Safety Report 6572028-7 (Version None)
Quarter: 2010Q1

REPORT INFORMATION
  Report Type: 
  Country: None (occurrence: None)
  Receive Date: 20100205
  Receipt Date: 20091125
  Transmission Date: 20100710
  Serious: Yes (Death, Hospitalization, Other)
  Sender: FDA-Public Use
  Company Number: BR-PFIZER INC-2009252615

PATIENT
  Age: 87 Year
  Sex: Male

DRUGS (7)
  1. XALATAN [Suspect]
     Indication: GLAUCOMA
     Dosage: UNK
     Route: 047
     Dates: start: 20060810
  2. XALATAN [Suspect]
     Indication: CATARACT
  3. XALACOM [Suspect]
     Route: 047
  4. RIVOTRIL [Concomitant]
     Dosage: UNK
  5. SOMALGIN [Concomitant]
     Dosage: UNK
     Dates: start: 20040101
  6. DOXAZOSIN [Concomitant]
     Dosage: UNK
     Dates: start: 19990101
  7. CILOSTAZOL [Concomitant]
     Dosage: UNK
     Dates: start: 20070101

REACTIONS (9)
  - BLINDNESS [None]
  - CARDIAC ARREST [None]
  - CATARACT OPERATION [None]
  - EYE DISORDER [None]
  - FALL [None]
  - FEMUR FRACTURE [None]
  - HUMERUS FRACTURE [None]
  - INFARCTION [None]
  - MULTI-ORGAN FAILURE [None]
